FAERS Safety Report 17771654 (Version 1)
Quarter: 2020Q2

REPORT INFORMATION
  Report Type: Spontaneous
  Country: US (occurrence: US)
  Receive Date: 20200512
  Receipt Date: 20200512
  Transmission Date: 20200714
  Serious: Yes (Other)
  Sender: FDA-Public Use
  Company Number: US-JNJFOC-20200509632

PATIENT
  Age: 72 Year
  Sex: Female

DRUGS (5)
  1. INFANTS TYLENOL [Suspect]
     Active Substance: ACETAMINOPHEN
     Dosage: AT 12:15
     Route: 048
     Dates: start: 20180518
  2. SYNTHROID [Concomitant]
     Active Substance: LEVOTHYROXINE SODIUM
     Indication: THYROIDECTOMY
     Route: 065
     Dates: start: 1920
  3. INFANTS TYLENOL [Suspect]
     Active Substance: ACETAMINOPHEN
     Dosage: AT 11:30
     Route: 048
     Dates: start: 20180518
  4. INFANTS TYLENOL [Suspect]
     Active Substance: ACETAMINOPHEN
     Indication: IMMUNE TOLERANCE INDUCTION
     Dosage: AT 11:00
     Route: 048
     Dates: start: 20180518, end: 20180518
  5. INFANTS TYLENOL [Suspect]
     Active Substance: ACETAMINOPHEN
     Dosage: AT 11:50
     Route: 048
     Dates: start: 20180518

REACTIONS (5)
  - Off label use [Recovering/Resolving]
  - Angioedema [Recovering/Resolving]
  - Respiratory disorder [Unknown]
  - Product use in unapproved indication [Recovering/Resolving]
  - Product use issue [Recovering/Resolving]

NARRATIVE: CASE EVENT DATE: 20180518
